FAERS Safety Report 22022093 (Version 1)
Quarter: 2023Q1

REPORT INFORMATION
  Report Type: Spontaneous
  Country: US (occurrence: None)
  Receive Date: 20230220
  Receipt Date: 20230220
  Transmission Date: 20230417
  Serious: Yes (Other)
  Sender: FDA-Public Use
  Company Number: None

PATIENT
  Age: 64 Year
  Sex: Female
  Weight: 107.5 kg

DRUGS (30)
  1. BOSULIF [Suspect]
     Active Substance: BOSUTINIB MONOHYDRATE
     Indication: Chronic myeloid leukaemia
     Dosage: FREQUENCY : DAILY;?
     Route: 048
     Dates: start: 202202, end: 20230215
  2. ACULAR 0.5% OPHTH SOLUTION 5ML [Concomitant]
  3. ACULAR 0.5% OPHTH SOLUTION 10ML [Concomitant]
  4. ALBUTEROL HFA INH (200 PUFFS) 8.5GM [Concomitant]
  5. ATROVENT HFA ORAL INHALER (200 INH) [Concomitant]
  6. BREO ELLIPTA 200-25MCG ORAL INH (30) [Concomitant]
  7. BUDESONIDE 0.5MG/2ML VIALS 2ML [Concomitant]
  8. FOLIC ACID 2MG TABLETS [Concomitant]
  9. LANTUS U-100 INSULIN 10ML [Concomitant]
  10. LISINOPRIL [Concomitant]
     Active Substance: LISINOPRIL
  11. ONDANSETRON 4MG TABLETS [Concomitant]
  12. TIZANIDINE 4MG CAPSULES [Concomitant]
  13. VITAMIN B-COMPLEX TABLETS [Concomitant]
  14. ELIQUIS [Concomitant]
     Active Substance: APIXABAN
  15. QUETIAZPINE 50MG TABLETS [Concomitant]
  16. SERTRALINE 25MG TABLETS [Concomitant]
  17. ALBUTEROL 0.21% (0.63MG/3ML) 25X3ML [Concomitant]
  18. AMLODIPINE BESYLATE [Concomitant]
     Active Substance: AMLODIPINE BESYLATE
  19. ASPIRIN 81MG EC LOW DOSE TABLETS [Concomitant]
  20. ATORVASTATIN [Concomitant]
     Active Substance: ATORVASTATIN
  21. BACITRACIN OINTMENT 14GM [Concomitant]
  22. INSULIN ASPART 100/ML INJ, 10ML [Concomitant]
  23. IPRATROPIUM INHAL SOLN 25 X 2.5ML [Concomitant]
  24. PROPRANOLOL 40MG TABLETS [Concomitant]
  25. TRAZODONE [Concomitant]
     Active Substance: TRAZODONE HYDROCHLORIDE
  26. ALLOPURINOL [Concomitant]
     Active Substance: ALLOPURINOL
  27. LORAZEPAM [Concomitant]
     Active Substance: LORAZEPAM
  28. LYRICA 25MG CAPSULES [Concomitant]
  29. MULTIVITAMIN ADULTS 50+ TABLETS [Concomitant]
  30. OMEPRAZOLE [Concomitant]
     Active Substance: OMEPRAZOLE

REACTIONS (3)
  - Pruritus [None]
  - Rash [None]
  - Therapy interrupted [None]
